FAERS Safety Report 17591172 (Version 1)
Quarter: 2020Q1

REPORT INFORMATION
  Report Type: Spontaneous
  Country: US (occurrence: US)
  Receive Date: 20200327
  Receipt Date: 20200327
  Transmission Date: 20200409
  Serious: No
  Sender: FDA-Public Use
  Company Number: US-PFIZER INC-2020128697

PATIENT
  Age: 56 Year
  Sex: Female

DRUGS (1)
  1. XELJANZ XR [Suspect]
     Active Substance: TOFACITINIB CITRATE
     Dosage: UNK
     Dates: start: 20200125

REACTIONS (6)
  - Abdominal pain upper [Unknown]
  - Rhinorrhoea [Unknown]
  - Productive cough [Unknown]
  - Infection [Unknown]
  - Headache [Unknown]
  - Blood cholesterol increased [Unknown]
